FAERS Safety Report 8208668-9 (Version None)
Quarter: 2012Q1

REPORT INFORMATION
  Report Type: 
  Country: None (occurrence: None)
  Receive Date: 20120314
  Receipt Date: 20120306
  Transmission Date: 20120608
  Serious: Yes (Hospitalization, Other)
  Sender: FDA-Public Use
  Company Number: US-BAYER-2012-016602

PATIENT
  Age: 38 Year
  Sex: Female
  Weight: 61.224 kg

DRUGS (4)
  1. CELEXA [Concomitant]
     Indication: ANXIETY
     Dosage: 20 MG, QD
     Dates: start: 20110701
  2. CITALOPRAM HYDROBROMIDE [Suspect]
     Indication: ANXIETY
     Dosage: 20 MG, UNK
     Dates: start: 20110601
  3. SYNTHROID [Concomitant]
     Indication: HYPOTHYROIDISM
  4. YAZ [Suspect]
     Indication: CONTRACEPTION
     Dosage: UNK
     Dates: start: 20091208, end: 20111129

REACTIONS (11)
  - HEADACHE [None]
  - VERTIGO [None]
  - HYPOAESTHESIA [None]
  - HEMIPARESIS [None]
  - NAUSEA [None]
  - DIZZINESS [None]
  - VOMITING [None]
  - MUSCULAR WEAKNESS [None]
  - DEHYDRATION [None]
  - CEREBRAL INFARCTION [None]
  - GASTROENTERITIS [None]
